FAERS Safety Report 5006978-X (Version None)
Quarter: 2006Q1

REPORT INFORMATION
  Report Type: 
  Country: None (occurrence: None)
  Receive Date: 20060320
  Receipt Date: 20050905
  Transmission Date: 20060701
  Serious: Yes (Hospitalization)
  Sender: FDA-Public Use
  Company Number: 2005-09-0295

PATIENT
  Age: 54 Year
  Sex: Male
  Weight: 65.7716 kg

DRUGS (7)
  1. PEG-INTRON [Suspect]
     Indication: HEPATITIS C
     Dosage: QWK SUBCUTANEOUS
     Route: 058
     Dates: start: 20050623
  2. REBETOL [Suspect]
     Indication: HEPATITIS C
     Dosage: SEE IMAGE
     Route: 048
     Dates: start: 20050623, end: 20050101
  3. REBETOL [Suspect]
     Indication: HEPATITIS C
     Dosage: SEE IMAGE
     Route: 048
     Dates: start: 20050101
  4. MILK THISTLE FRUIT CAPSULES [Concomitant]
  5. MORPHINE SULFATE TABLETS [Concomitant]
  6. MS CONTIN SUSTAINED RELEASE TABLETS [Concomitant]
  7. QUINIDINE SULFATE [Concomitant]

REACTIONS (3)
  - ANAEMIA [None]
  - MUSCLE SPASMS [None]
  - PNEUMONIA [None]
